FAERS Safety Report 24652986 (Version 1)
Quarter: 2024Q4

REPORT INFORMATION
  Report Type: Spontaneous
  Country: US (occurrence: None)
  Receive Date: 20241122
  Receipt Date: 20241122
  Transmission Date: 20250115
  Serious: Yes (unspecified)
  Sender: Public
  Company Number: None

PATIENT
  Age: 96 Year
  Sex: Male

DRUGS (1)
  1. REMDESIVIR [Suspect]
     Active Substance: REMDESIVIR
     Indication: COVID-19
     Dates: start: 20240905, end: 20240906

REACTIONS (3)
  - Liver function test increased [None]
  - International normalised ratio increased [None]
  - Drug-induced liver injury [None]

NARRATIVE: CASE EVENT DATE: 20240906
